FAERS Safety Report 8202304-3 (Version None)
Quarter: 2012Q1

REPORT INFORMATION
  Report Type: 
  Country: None (occurrence: None)
  Receive Date: 20120308
  Receipt Date: 20120302
  Transmission Date: 20120608
  Serious: Yes (Death, Hospitalization)
  Sender: FDA-Public Use
  Company Number: 1215970

PATIENT
  Age: 74 Year
  Sex: Female
  Weight: 88 kg

DRUGS (4)
  1. DAUNORUBICIN HCL [Suspect]
     Indication: ACUTE MYELOID LEUKAEMIA
     Dosage: 60 MG/M2, DAYS 1, 2 AND 3
     Dates: start: 20120208, end: 20120210
  2. CIPROFLOXACIN [Concomitant]
  3. CYTARABINE [Suspect]
     Indication: ACUTE MYELOID LEUKAEMIA
     Dosage: 100 MG/M2, DAYS 1-7, ,INTRAVENOUS
     Route: 042
     Dates: start: 20120208, end: 20120214
  4. ACYCLOVIR [Concomitant]

REACTIONS (13)
  - ALANINE AMINOTRANSFERASE INCREASED [None]
  - BLOOD PRESSURE IMMEASURABLE [None]
  - ASPARTATE AMINOTRANSFERASE INCREASED [None]
  - ACIDOSIS [None]
  - SEPTIC SHOCK [None]
  - OXYGEN SATURATION DECREASED [None]
  - PULSE ABSENT [None]
  - CONFUSIONAL STATE [None]
  - AGITATION [None]
  - BLOOD BICARBONATE DECREASED [None]
  - HAEMORRHAGE [None]
  - BODY TEMPERATURE INCREASED [None]
  - MULTI-ORGAN FAILURE [None]
